FAERS Safety Report 14149410 (Version 2)
Quarter: 2017Q4

REPORT INFORMATION
  Report Type: Report from Study
  Country: JP (occurrence: JP)
  Receive Date: 20171101
  Receipt Date: 20171102
  Transmission Date: 20180321
  Serious: Yes (Death)
  Sender: FDA-Public Use
  Company Number: JP-DSJP-DSJ-2017-151645

PATIENT

DRUGS (25)
  1. TEPRENONE [Concomitant]
     Active Substance: TEPRENONE
     Dosage: 1.5G/DAY
     Route: 048
  2. EDOXABAN [Suspect]
     Active Substance: EDOXABAN TOSYLATE
     Indication: DEEP VEIN THROMBOSIS
     Dosage: 30 MG, QD
     Route: 048
     Dates: start: 20170203, end: 20170314
  3. CONSTAN                            /00595201/ [Concomitant]
     Active Substance: ALPRAZOLAM
     Dosage: 1.2MG/DAY
     Route: 048
  4. SENNA [Concomitant]
     Active Substance: SENNA LEAF\SENNOSIDES\SENNOSIDES A AND B
     Dosage: 80 MG, AS NEEDED
     Route: 048
     Dates: end: 20170314
  5. DIHYDROCODEINE PHOSPHATE [Concomitant]
     Active Substance: DIHYDROCODEINE PHOSPHATE
     Dosage: 3G/DAY
     Route: 048
     Dates: end: 20170314
  6. ABRAXANE [Suspect]
     Active Substance: PACLITAXEL
     Dosage: 150MG/DAY
     Route: 042
     Dates: start: 20170203, end: 20170308
  7. PARAPLATIN [Suspect]
     Active Substance: CARBOPLATIN
     Dosage: 400MG/DAY
     Route: 042
     Dates: start: 20170203, end: 20170302
  8. DECADRON [Concomitant]
     Active Substance: DEXAMETHASONE
     Dosage: 2MG/DAY
     Route: 048
     Dates: start: 20170203, end: 20170314
  9. MAGMITT [Concomitant]
     Active Substance: MAGNESIUM OXIDE
     Dosage: 1980MG/DAY
     Route: 048
     Dates: start: 20170203, end: 20170314
  10. LENDORMIN [Concomitant]
     Active Substance: BROTIZOLAM
     Dosage: 0.25 MG, AS NEEDED
     Route: 048
     Dates: start: 20170203, end: 20170314
  11. GASTER [Concomitant]
     Active Substance: FAMOTIDINE
     Dosage: 40MG/DAY
     Route: 048
     Dates: start: 20170222, end: 20170314
  12. SELBEX [Concomitant]
     Active Substance: TEPRENONE
     Dosage: 150MG/DAY
     Route: 048
     Dates: start: 20170303, end: 20170314
  13. FAMOTIDINE. [Concomitant]
     Active Substance: FAMOTIDINE
     Dosage: 40MG/DAY
     Route: 048
  14. AMOBAN [Concomitant]
     Active Substance: ZOPICLONE
     Dosage: 10 MG, AS NEEDED
     Route: 048
     Dates: start: 20170201, end: 20170314
  15. NOVAMIN                            /00013304/ [Concomitant]
     Active Substance: PROCHLORPERAZINE MALEATE
     Dosage: 15MG/DAY
     Route: 048
     Dates: start: 20170201, end: 20170314
  16. ALOXI [Concomitant]
     Active Substance: PALONOSETRON HYDROCHLORIDE
     Dosage: 0.75MG/DAY
     Route: 042
     Dates: start: 20170203, end: 20170302
  17. NAUZELIN [Concomitant]
     Active Substance: DOMPERIDONE
     Dosage: 30MG/DAY
     Route: 048
     Dates: start: 20170222, end: 20170314
  18. SULPIRIDE [Concomitant]
     Active Substance: SULPIRIDE
     Dosage: 150MG/DAY
     Route: 048
  19. OPSO [Concomitant]
     Active Substance: MORPHINE HYDROCHLORIDE
     Dosage: 5 MG, AS NEEDED
     Route: 048
     Dates: start: 20170201, end: 20170314
  20. ENSURE [Concomitant]
     Active Substance: AMINO ACIDS\DEXTROSE\ELECTROLYTES NOS\SOYBEAN OIL\VITAMINS
     Dosage: 250ML/DAY
     Route: 048
     Dates: start: 20170207, end: 20170314
  21. AZUNOL                             /00620101/ [Concomitant]
     Active Substance: GUAIAZULENE
     Dosage: AS MUCH AS SUFFICES, UNK
     Route: 050
     Dates: start: 20170224, end: 20170314
  22. AVASTIN [Suspect]
     Active Substance: BEVACIZUMAB
     Dosage: 780MG/DAY
     Route: 042
     Dates: start: 20170210, end: 20170314
  23. DOMPERIDONE [Concomitant]
     Active Substance: DOMPERIDONE
     Dosage: 30MG/DAY
     Route: 048
  24. KADIAN [Concomitant]
     Active Substance: MORPHINE SULFATE
     Dosage: 20MG/DAY
     Route: 048
     Dates: start: 20170202, end: 20170314
  25. DEXART [Concomitant]
     Active Substance: DEXAMETHASONE SODIUM PHOSPHATE
     Dosage: 2ML/DAY
     Route: 042
     Dates: start: 20170203, end: 20170308

REACTIONS (6)
  - Pneumonia [Fatal]
  - Hypercapnia [Fatal]
  - Neutrophil count decreased [Not Recovered/Not Resolved]
  - Decreased appetite [Not Recovered/Not Resolved]
  - Epistaxis [Recovered/Resolved]
  - Skin exfoliation [Not Recovered/Not Resolved]

NARRATIVE: CASE EVENT DATE: 20170207
